FAERS Safety Report 4675645-4 (Version None)
Quarter: 2005Q2

REPORT INFORMATION
  Report Type: 
  Country: None (occurrence: None)
  Receive Date: 20050527
  Receipt Date: 20050517
  Transmission Date: 20051028
  Serious: Yes (Hospitalization)
  Sender: FDA-Public Use
  Company Number: PHRM2005FR01550

PATIENT
  Age: 54 Year
  Sex: Male
  Weight: 75 kg

DRUGS (8)
  1. METHOTREXATE [Suspect]
     Indication: BONE MARROW TRANSPLANT
     Dates: start: 20041016, end: 20041109
  2. SPECIAFOLDINE [Concomitant]
  3. MAG 2 [Concomitant]
  4. ROVAMYCINE [Concomitant]
  5. TRIFLUCAN [Concomitant]
  6. TENORDATE [Concomitant]
  7. LEXOMIL [Concomitant]
  8. NEORAL [Suspect]
     Indication: BONE MARROW TRANSPLANT
     Route: 048
     Dates: start: 20041109, end: 20041220

REACTIONS (20)
  - APHASIA [None]
  - CONVULSION [None]
  - DISTURBANCE IN ATTENTION [None]
  - DYSARTHRIA [None]
  - DYSPHAGIA [None]
  - ELECTROENCEPHALOGRAM ABNORMAL [None]
  - FACIAL PALSY [None]
  - GLASGOW COMA SCALE ABNORMAL [None]
  - HEMIPARESIS [None]
  - HEMIPLEGIA [None]
  - HICCUPS [None]
  - IIIRD NERVE DISORDER [None]
  - INFECTION [None]
  - INTUBATION [None]
  - LARYNGEAL OEDEMA [None]
  - LUNG INFECTION [None]
  - NERVOUS SYSTEM DISORDER [None]
  - OPHTHALMOPLEGIA [None]
  - PARTIAL SEIZURES [None]
  - PYREXIA [None]
